FAERS Safety Report 6418834-0 (Version None)
Quarter: 2009Q4

REPORT INFORMATION
  Report Type: 
  Country: None (occurrence: None)
  Receive Date: 20091029
  Receipt Date: 20091023
  Transmission Date: 20100525
  Serious: Yes (Hospitalization)
  Sender: FDA-Public Use
  Company Number: US-BIOGENIDEC-2009BI024576

PATIENT
  Sex: Female
  Weight: 76 kg

DRUGS (3)
  1. TYSABRI [Suspect]
     Indication: MULTIPLE SCLEROSIS
     Route: 042
     Dates: start: 20040101, end: 20050228
  2. TYSABRI [Suspect]
     Route: 042
     Dates: start: 20070501
  3. SSRIS [Concomitant]
     Indication: DEPRESSION

REACTIONS (4)
  - LYMPHOEDEMA [None]
  - MOBILITY DECREASED [None]
  - MULTIPLE SCLEROSIS RELAPSE [None]
  - URINARY TRACT INFECTION [None]
